FAERS Safety Report 7993519-8 (Version None)
Quarter: 2011Q4

REPORT INFORMATION
  Report Type: 
  Country: None (occurrence: None)
  Receive Date: 20111219
  Receipt Date: 20111011
  Transmission Date: 20120403
  Serious: No
  Sender: FDA-Public Use
  Company Number: US-ASTRAZENECA-2011SE21826

PATIENT
  Age: 81 Year
  Sex: Female

DRUGS (4)
  1. LIPITOR [Concomitant]
     Indication: HYPERCHOLESTEROLAEMIA
  2. ZOCOR [Concomitant]
     Indication: HYPERCHOLESTEROLAEMIA
  3. CRESTOR [Suspect]
     Route: 048
  4. ZETIA [Concomitant]
     Indication: HYPERCHOLESTEROLAEMIA

REACTIONS (1)
  - MALAISE [None]
